FAERS Safety Report 5528875-3 (Version None)
Quarter: 2007Q4

REPORT INFORMATION
  Report Type: 
  Country: None (occurrence: None)
  Receive Date: 20071129
  Receipt Date: 20071119
  Transmission Date: 20080405
  Serious: Yes (Hospitalization)
  Sender: FDA-Public Use
  Company Number: FR-JNJFOC-20071107416

PATIENT
  Age: 56 Year
  Sex: Male

DRUGS (10)
  1. REMICADE [Suspect]
     Indication: COLITIS ULCERATIVE
     Route: 042
  2. REMICADE [Suspect]
     Indication: ANKYLOSING SPONDYLITIS
     Dosage: 9 INFUSIONS ON UNKNOWN DATES, 10TH INFUSION ON 06-JUN-2007
     Route: 042
  3. SEGLOR [Concomitant]
  4. LORAZEPAM [Concomitant]
  5. DOXAZOSIN MESYLATE [Concomitant]
  6. VIRLIX [Concomitant]
  7. PENTASA [Concomitant]
  8. SOLUPRED [Concomitant]
  9. LANTUS [Concomitant]
  10. NOVORAPID [Concomitant]

REACTIONS (1)
  - NEOPLASM PROSTATE [None]
